FAERS Safety Report 17873938 (Version 1)
Quarter: 2020Q2

REPORT INFORMATION
  Report Type: Spontaneous
  Country: RO (occurrence: RO)
  Receive Date: 20200609
  Receipt Date: 20200609
  Transmission Date: 20200714
  Serious: Yes (Other)
  Sender: FDA-Public Use
  Company Number: RO-SA-2020SA146561

PATIENT

DRUGS (7)
  1. CLARITINE [Concomitant]
     Active Substance: LORATADINE
     Dosage: UNK
  2. AERIUS (DESLORATADINE) [Concomitant]
     Active Substance: DESLORATADINE
     Dosage: UNK
  3. DYMISTA [Concomitant]
     Active Substance: AZELASTINE HYDROCHLORIDE\FLUTICASONE PROPIONATE
  4. NASONEX [Concomitant]
     Active Substance: MOMETASONE FUROATE
  5. ASTHA [CHLORPHENAMINE MALEATE;LIDOCAINE HYDROCHLORIDE;MENTHOL;MESULFEN [Concomitant]
  6. XYZAL [Suspect]
     Active Substance: LEVOCETIRIZINE DIHYDROCHLORIDE
     Indication: PRODUCT USED FOR UNKNOWN INDICATION
     Dosage: UNK
  7. RINOCORT [Concomitant]

REACTIONS (5)
  - Dyspnoea [Unknown]
  - Rhinitis [Unknown]
  - Suffocation feeling [Unknown]
  - Drug ineffective [Unknown]
  - Nasal dryness [Unknown]
